FAERS Safety Report 6450089-3 (Version None)
Quarter: 2009Q4

REPORT INFORMATION
  Report Type: 
  Country: None (occurrence: None)
  Receive Date: 20091120
  Receipt Date: 20091120
  Transmission Date: 20100525
  Serious: Yes (Hospitalization)
  Sender: FDA-Public Use
  Company Number: None

PATIENT
  Sex: Female
  Weight: 72 kg

DRUGS (4)
  1. NOLVADEX [Suspect]
     Dosage: 20 MG
  2. ASPIRIN [Concomitant]
  3. TEGRETOL [Concomitant]
  4. TOPAMAX [Concomitant]

REACTIONS (1)
  - PULMONARY EMBOLISM [None]
